FAERS Safety Report 6620053-X (Version None)
Quarter: 2010Q1

REPORT INFORMATION
  Report Type: 
  Country: None (occurrence: None)
  Receive Date: 20100309
  Receipt Date: 20100304
  Transmission Date: 20100710
  Serious: Yes (Other)
  Sender: FDA-Public Use
  Company Number: HK-ROCHE-670394

PATIENT
  Age: 19 Year
  Sex: Female

DRUGS (1)
  1. TAMIFLU [Suspect]
     Route: 065
     Dates: start: 20090815, end: 20090819

REACTIONS (1)
  - MANIA [None]
